FAERS Safety Report 7132229-6 (Version None)
Quarter: 2010Q4

REPORT INFORMATION
  Report Type: 
  Country: None (occurrence: None)
  Receive Date: 20101130
  Receipt Date: 20101130
  Transmission Date: 20110411
  Serious: Yes (Other)
  Sender: FDA-Public Use
  Company Number: None

PATIENT
  Age: 51 Year
  Sex: Female
  Weight: 44.4525 kg

DRUGS (2)
  1. OMEPRAZOLE AND SODIUM BICARBONATE [Suspect]
     Indication: GASTROOESOPHAGEAL REFLUX DISEASE
     Dosage: 1 BID PO
     Route: 048
     Dates: start: 20100712, end: 20100810
  2. OMEPRAZOLE AND SODIUM BICARBONATE [Suspect]
     Indication: IRRITABLE BOWEL SYNDROME
     Dosage: 1 BID PO
     Route: 048
     Dates: start: 20100712, end: 20100810

REACTIONS (5)
  - ABDOMINAL PAIN [None]
  - DECREASED APPETITE [None]
  - DIARRHOEA [None]
  - DYSPHONIA [None]
  - NAUSEA [None]
